FAERS Safety Report 5291948-7 (Version None)
Quarter: 2007Q2

REPORT INFORMATION
  Report Type: 
  Country: None (occurrence: None)
  Receive Date: 20070403
  Receipt Date: 20070322
  Transmission Date: 20071010
  Serious: Yes (Death)
  Sender: FDA-Public Use
  Company Number: 2007-00708

PATIENT
  Age: 69 Year
  Sex: Male
  Weight: 67.5 kg

DRUGS (2)
  1. VELCADE [Suspect]
     Indication: MULTIPLE MYELOMA
     Dosage: 1.30 MG/M2, INTRAVENOUS
     Route: 042
     Dates: start: 20061127, end: 20070202
  2. DEXAMETHASONE 0.5MG TAB [Concomitant]

REACTIONS (1)
  - PNEUMONIA [None]
